FAERS Safety Report 5500372-0 (Version None)
Quarter: 2007Q4

REPORT INFORMATION
  Report Type: 
  Country: None (occurrence: None)
  Receive Date: 20071025
  Receipt Date: 20071025
  Transmission Date: 20080405
  Serious: No
  Sender: FDA-Public Use
  Company Number: None

PATIENT
  Sex: Male
  Weight: 73.4 kg

DRUGS (4)
  1. FLUOROURACIL [Suspect]
     Dosage: 9615 MG
     Dates: end: 20070904
  2. BEVACIZUMAB (RHUMAB VEGF) [Suspect]
     Dosage: 1411 MG
     Dates: end: 20070904
  3. CAMPTOSAR [Suspect]
     Dosage: 707 MG
     Dates: end: 20070904
  4. LEUCOVORIN CALCIUM [Suspect]
     Dosage: 2828 MG
     Dates: end: 20070904

REACTIONS (8)
  - DIARRHOEA [None]
  - DISEASE PROGRESSION [None]
  - DRUG TOXICITY [None]
  - FATIGUE [None]
  - FEELING ABNORMAL [None]
  - LIVER DISORDER [None]
  - MYOCARDIAL INFARCTION [None]
  - MYOCARDIAL ISCHAEMIA [None]
